FAERS Safety Report 8034444-6 (Version None)
Quarter: 2012Q1

REPORT INFORMATION
  Report Type: 
  Country: None (occurrence: None)
  Receive Date: 20120110
  Receipt Date: 20120106
  Transmission Date: 20120608
  Serious: Yes (Life-Threatening)
  Sender: FDA-Public Use
  Company Number: FR-PFIZER INC-2012004088

PATIENT
  Age: 25 Year
  Sex: Female

DRUGS (12)
  1. OXAZEPAM [Suspect]
     Dosage: 1 G
     Route: 048
     Dates: start: 20111012
  2. TOPIRAMATE [Concomitant]
     Dosage: 50 MG, 1X/DAY
  3. ESCITALOPRAM [Suspect]
     Dosage: 140 MG
     Route: 048
     Dates: start: 20111012
  4. HAVLANE [Concomitant]
     Dosage: 1X/DAY
  5. PROPRANOLOL [Suspect]
     Dosage: 20 MG, 1X/DAY
     Route: 048
  6. PROPRANOLOL [Suspect]
     Dosage: 2 G
     Route: 048
     Dates: start: 20111012
  7. PRAZEPAM [Concomitant]
     Dosage: UNK
  8. ATARAX [Concomitant]
     Dosage: 3X/DAY
  9. XANAX [Suspect]
     Dosage: 7.5 MG
     Route: 048
     Dates: start: 20111012
  10. XANAX [Suspect]
     Dosage: 7.5 MG
     Route: 048
     Dates: start: 20111012
  11. OXAZEPAM [Suspect]
     Dosage: 50 MG, 4X/DAY
     Route: 048
  12. ESCITALOPRAM [Suspect]
     Dosage: 10 MG, 1X/DAY
     Route: 048

REACTIONS (5)
  - TOXICITY TO VARIOUS AGENTS [None]
  - SUICIDE ATTEMPT [None]
  - INTENTIONAL OVERDOSE [None]
  - COMA [None]
  - CIRCULATORY COLLAPSE [None]
